FAERS Safety Report 15530354 (Version 5)
Quarter: 2019Q3

REPORT INFORMATION
  Report Type: Spontaneous
  Country: US (occurrence: US)
  Receive Date: 20181018
  Receipt Date: 20190927
  Transmission Date: 20191004
  Serious: Yes (Hospitalization, Other)
  Sender: FDA-Public Use
  Company Number: US-ACTELION-A-NJ2018-180315

PATIENT
  Sex: Female
  Weight: 83.45 kg

DRUGS (4)
  1. VELETRI [Suspect]
     Active Substance: EPOPROSTENOL
     Dosage: 70 NG/KG, PER MIN
     Route: 042
  2. LETAIRIS [Concomitant]
     Active Substance: AMBRISENTAN
  3. ADCIRCA [Concomitant]
     Active Substance: TADALAFIL
  4. VELETRI [Suspect]
     Active Substance: EPOPROSTENOL
     Indication: PULMONARY ARTERIAL HYPERTENSION
     Dosage: 50 NG/KG, PER MIN
     Route: 042

REACTIONS (10)
  - Seizure [Unknown]
  - Abdominal discomfort [Unknown]
  - Vomiting [Unknown]
  - Back pain [Unknown]
  - Device leakage [Unknown]
  - Arthralgia [Unknown]
  - Fluid overload [Unknown]
  - Eye infection staphylococcal [Unknown]
  - Diarrhoea [Unknown]
  - Device related infection [Unknown]
